FAERS Safety Report 5464576-8 (Version None)
Quarter: 2007Q3

REPORT INFORMATION
  Report Type: 
  Country: None (occurrence: None)
  Receive Date: 20070921
  Receipt Date: 20070912
  Transmission Date: 20080115
  Serious: Yes (Other)
  Sender: FDA-Public Use
  Company Number: US-AMGEN-US241679

PATIENT
  Sex: Female

DRUGS (5)
  1. ENBREL [Suspect]
     Indication: RHEUMATOID ARTHRITIS
     Route: 058
     Dates: start: 20061103
  2. PROCARDIA [Suspect]
     Route: 065
  3. ARAVA [Concomitant]
     Route: 065
     Dates: start: 20030101
  4. LEVOTHYROXINE SODIUM [Concomitant]
     Route: 065
  5. VICODIN [Concomitant]
     Route: 065
     Dates: start: 20060101

REACTIONS (1)
  - ARRHYTHMIA [None]
